FAERS Safety Report 17152480 (Version 6)
Quarter: 2020Q3

REPORT INFORMATION
  Report Type: Report from Study
  Country: US (occurrence: US)
  Receive Date: 20191213
  Receipt Date: 20200813
  Transmission Date: 20201102
  Serious: Yes (Other)
  Sender: FDA-Public Use
  Company Number: NVSC2019US069284

PATIENT
  Age: 55 Year
  Sex: Female

DRUGS (1)
  1. GILENYA [Suspect]
     Active Substance: FINGOLIMOD HYDROCHLORIDE
     Indication: MULTIPLE SCLEROSIS
     Dosage: 0.5 MG, QD
     Route: 048
     Dates: start: 20190731

REACTIONS (6)
  - Nasopharyngitis [Unknown]
  - Syncope [Recovering/Resolving]
  - Hair growth abnormal [Unknown]
  - Cough [Unknown]
  - Headache [Unknown]
  - Trichorrhexis [Unknown]

NARRATIVE: CASE EVENT DATE: 202001
